FAERS Safety Report 5836570-6 (Version None)
Quarter: 2008Q3

REPORT INFORMATION
  Report Type: 
  Country: None (occurrence: None)
  Receive Date: 20080807
  Receipt Date: 20080729
  Transmission Date: 20090109
  Serious: Yes (Hospitalization, Other)
  Sender: FDA-Public Use
  Company Number: GB-ABBOTT-08P-167-0451162-00

PATIENT
  Age: 31 Year
  Sex: Male

DRUGS (7)
  1. DEPAKOTE [Suspect]
     Indication: SCHIZOAFFECTIVE DISORDER
     Route: 048
  2. AMISULPRIDE [Suspect]
     Indication: BIPOLAR DISORDER
     Route: 048
     Dates: start: 20070101
  3. AMISULPRIDE [Suspect]
     Indication: PSYCHOTIC DISORDER
  4. AMLODIPINE [Concomitant]
     Indication: DRUG USE FOR UNKNOWN INDICATION
  5. RAMIPRIL [Concomitant]
     Indication: HYPERTENSION
  6. QUETIAPINE FUMARATE [Concomitant]
     Indication: DRUG USE FOR UNKNOWN INDICATION
  7. PROCYCLIDINE HYDROCHLORIDE 2MG TAB [Concomitant]
     Indication: EXTRAPYRAMIDAL DISORDER
     Route: 048
     Dates: start: 19980101

REACTIONS (6)
  - CONDITION AGGRAVATED [None]
  - CONGENITAL CYSTIC KIDNEY DISEASE [None]
  - DRUG INEFFECTIVE [None]
  - MANIA [None]
  - RENAL HYPERTENSION [None]
  - RENAL IMPAIRMENT [None]
